FAERS Safety Report 6134263-1 (Version None)
Quarter: 2009Q1

REPORT INFORMATION
  Report Type: 
  Country: None (occurrence: None)
  Receive Date: 20090325
  Receipt Date: 20090311
  Transmission Date: 20090719
  Serious: Yes (Other)
  Sender: FDA-Public Use
  Company Number: 2009JP000922

PATIENT
  Age: 45 Year
  Sex: Female

DRUGS (12)
  1. PROGRAF [Suspect]
     Indication: RHEUMATOID ARTHRITIS
     Dosage: ORAL
     Route: 048
     Dates: start: 20090115, end: 20090206
  2. CELECOX (CELECOXIB) TABLET [Concomitant]
  3. ZYRTEC (CETIRIZINE HYDROCHLORIDE) PER ORAL NOS [Concomitant]
  4. PARIET (RABEPRAZOLE SODIUM) PER ORAL NOS [Concomitant]
  5. SINGULAIR (MONTELUKAST) PER ORAL NOS [Concomitant]
  6. NORVASC (AMLODIPOINE BESILATE) PER ORAL NOS [Concomitant]
  7. ALLELOCK (OLOPATADINE HYDROCHLORIDE) PER ORAL NOS [Concomitant]
  8. EMPYNASE (PRONASE) PER ORAL NOS [Concomitant]
  9. ASTOMIN (ASTEMIZOLE) PER ORAL NOS [Concomitant]
  10. ALOSENN (TARAXACUM OFFICINALE, RUBIA TINCTORUM ROOT TINCTURE, ACHILLEA [Concomitant]
  11. FLUTIDE (FLUTICASONE PROPIONATE) INHALATION [Concomitant]
  12. SEREVENT (SALMETEROL XINAFOATE) INHALATION [Concomitant]

REACTIONS (4)
  - BLOOD FIBRINOGEN INCREASED [None]
  - DRY GANGRENE [None]
  - FIBRIN DEGRADATION PRODUCTS INCREASED [None]
  - PLATELET COUNT INCREASED [None]
